FAERS Safety Report 14709938 (Version 1)
Quarter: 2018Q2

REPORT INFORMATION
  Report Type: Spontaneous
  Country: US (occurrence: US)
  Receive Date: 20180403
  Receipt Date: 20180403
  Transmission Date: 20180711
  Serious: Yes (Hospitalization)
  Sender: FDA-Public Use
  Company Number: US-LEXICON PHARMACEUTICALS, INC-18-1606-00326

PATIENT
  Age: 63 Year
  Sex: Female

DRUGS (17)
  1. OLANZAPINE. [Concomitant]
     Active Substance: OLANZAPINE
  2. PREDNISONE. [Concomitant]
     Active Substance: PREDNISONE
  3. FAMOTIDINE. [Concomitant]
     Active Substance: FAMOTIDINE
  4. GABAPENTIN. [Concomitant]
     Active Substance: GABAPENTIN
  5. FENTANYL. [Concomitant]
     Active Substance: FENTANYL
  6. ALOSETRON [Concomitant]
     Active Substance: ALOSETRON
  7. ESCITALOPRAM [Concomitant]
     Active Substance: ESCITALOPRAM OXALATE
  8. ONDANSETRON [Concomitant]
     Active Substance: ONDANSETRON
  9. METHADONE [Concomitant]
     Active Substance: METHADONE HYDROCHLORIDE
  10. NORCO [Concomitant]
     Active Substance: ACETAMINOPHEN\HYDROCODONE BITARTRATE
  11. SANDOSTATIN [Concomitant]
     Active Substance: OCTREOTIDE ACETATE
  12. RESTASIS [Concomitant]
     Active Substance: CYCLOSPORINE
  13. TELOTRISTAT ETHYL [Suspect]
     Active Substance: TELOTRISTAT ETHYL
     Indication: NEUROENDOCRINE TUMOUR
  14. VIBERZI [Concomitant]
     Active Substance: ELUXADOLINE
  15. EMEND [Concomitant]
     Active Substance: APREPITANT
  16. TELOTRISTAT ETHYL [Suspect]
     Active Substance: TELOTRISTAT ETHYL
     Indication: CARCINOID TUMOUR
     Route: 048
     Dates: start: 20180227, end: 20180302
  17. BUPROPION. [Concomitant]
     Active Substance: BUPROPION

REACTIONS (2)
  - Peripheral embolism [Unknown]
  - Diarrhoea [Unknown]

NARRATIVE: CASE EVENT DATE: 2018
